FAERS Safety Report 21416744 (Version 1)
Quarter: 2022Q4

REPORT INFORMATION
  Report Type: Spontaneous
  Country: US (occurrence: None)
  Receive Date: 20221005
  Receipt Date: 20221005
  Transmission Date: 20230113
  Serious: Yes (Hospitalization)
  Sender: FDA-Public Use
  Company Number: None

PATIENT
  Age: 71 Year
  Sex: Male
  Weight: 80.33 kg

DRUGS (1)
  1. TECARTUS [Suspect]
     Active Substance: BREXUCABTAGENE AUTOLEUCEL
     Indication: Ligament disorder
     Route: 042
     Dates: start: 20220822, end: 20220822

REACTIONS (9)
  - Neurotoxicity [None]
  - Pyrexia [None]
  - Chills [None]
  - Chills [None]
  - Malaise [None]
  - Hypotension [None]
  - Malaise [None]
  - Fatigue [None]
  - Pneumothorax [None]

NARRATIVE: CASE EVENT DATE: 20220828
